FAERS Safety Report 9477939 (Version 2)
Quarter: 2013Q3

REPORT INFORMATION
  Report Type: Spontaneous
  Country: US (occurrence: None)
  Receive Date: 20130822
  Receipt Date: 20130926
  Transmission Date: 20140515
  Serious: Yes (Other)
  Sender: FDA-Public Use
  Company Number: JPI-P-034469

PATIENT
  Age: 57 Year
  Sex: Male

DRUGS (1)
  1. XYREM [Suspect]
     Indication: HYPERSOMNIA
     Dosage: 4.5GM (2.25GM, 2 IN 1 D), ORAL
     Route: 048
     Dates: start: 20100521

REACTIONS (2)
  - Head injury [None]
  - Laceration [None]
